FAERS Safety Report 10766701 (Version 2)
Quarter: 2015Q1

REPORT INFORMATION
  Report Type: Spontaneous
  Country: US (occurrence: US)
  Receive Date: 20150205
  Receipt Date: 20150213
  Transmission Date: 20150721
  Serious: Yes (Other)
  Sender: FDA-Public Use
  Company Number: US-AMGEN-USASP2015009811

PATIENT
  Age: 78 Year
  Sex: Female

DRUGS (3)
  1. PROLIA [Suspect]
     Active Substance: DENOSUMAB
     Indication: PRODUCT USED FOR UNKNOWN INDICATION
     Dosage: 60 MG, UNK
     Route: 065
     Dates: start: 20130506
  2. PROLIA [Suspect]
     Active Substance: DENOSUMAB
     Dosage: 60 MG, UNK
     Route: 058
     Dates: start: 20141206
  3. PROLIA [Suspect]
     Active Substance: DENOSUMAB
     Dosage: 60 UNK, UNK
     Route: 058
     Dates: start: 20131012

REACTIONS (1)
  - Brain injury [Unknown]
